FAERS Safety Report 6175783-3 (Version None)
Quarter: 2009Q2

REPORT INFORMATION
  Report Type: 
  Country: None (occurrence: None)
  Receive Date: 20090501
  Receipt Date: 20090427
  Transmission Date: 20091009
  Serious: Yes (Hospitalization)
  Sender: FDA-Public Use
  Company Number: US-JNJFOC-20090406858

PATIENT
  Sex: Male

DRUGS (5)
  1. DURAGESIC-100 [Suspect]
     Indication: ARTHRALGIA
     Route: 062
  2. DURAGESIC-100 [Suspect]
     Indication: BACK PAIN
     Dosage: TWO 100 UG/HR AND ONE 25 UG/HR  PATCH
     Route: 062
  3. HYDROCODONE BITARTRATE [Suspect]
     Indication: BREAKTHROUGH PAIN
     Dosage: 10-650 MG AS NEEDED
     Route: 048
  4. REGLAN [Concomitant]
     Indication: GASTRIC DISORDER
     Route: 048
  5. PRILOSEC [Concomitant]
     Indication: GASTRIC DISORDER
     Route: 048

REACTIONS (3)
  - BREAKTHROUGH PAIN [None]
  - HEPATIC FAILURE [None]
  - INAPPROPRIATE SCHEDULE OF DRUG ADMINISTRATION [None]
